FAERS Safety Report 7036988-2 (Version None)
Quarter: 2010Q4

REPORT INFORMATION
  Report Type: 
  Country: None (occurrence: None)
  Receive Date: 20101011
  Receipt Date: 20101001
  Transmission Date: 20110411
  Serious: Yes (Other)
  Sender: FDA-Public Use
  Company Number: JP-BRISTOL-MYERS SQUIBB COMPANY-15046550

PATIENT
  Age: 32 Year
  Sex: Female
  Weight: 62 kg

DRUGS (1)
  1. ABILIFY [Suspect]
     Indication: SCHIZOPHRENIA
     Dosage: DISCONTINUED AND RESTARTED
     Route: 048
     Dates: start: 20080221

REACTIONS (3)
  - NORMAL NEWBORN [None]
  - PREGNANCY [None]
  - THREATENED LABOUR [None]
